FAERS Safety Report 4380188-1 (Version None)
Quarter: 2004Q2

REPORT INFORMATION
  Report Type: 
  Country: None (occurrence: None)
  Receive Date: 20040601
  Receipt Date: 20040421
  Transmission Date: 20050107
  Serious: No
  Sender: FDA-Public Use
  Company Number: WAES0307USA00766

PATIENT
  Age: 77 Year
  Sex: Female

DRUGS (3)
  1. ZETIA [Suspect]
     Indication: BLOOD CHOLESTEROL INCREASED
     Dosage: 10 MG/DAILY/PO
     Route: 048
     Dates: start: 20030408
  2. CARDIZEM [Concomitant]
  3. COUMADIN [Concomitant]

REACTIONS (3)
  - COUGH [None]
  - MUSCLE CRAMP [None]
  - THROAT IRRITATION [None]
